FAERS Safety Report 13527038 (Version 2)
Quarter: 2017Q2

REPORT INFORMATION
  Report Type: Spontaneous
  Country: FR (occurrence: FR)
  Receive Date: 20170509
  Receipt Date: 20170519
  Transmission Date: 20170830
  Serious: Yes (Life-Threatening, Hospitalization, Disabling, Other)
  Sender: FDA-Public Use
  Company Number: FR-SEPTODONT-201703998

PATIENT
  Age: 50 Year
  Sex: Female

DRUGS (1)
  1. SEPTANEST 40 MG/ML ADR?NALIN?E AU 1/100.000 [Suspect]
     Active Substance: ARTICAINE HYDROCHLORIDE\EPINEPHRINE BITARTRATE
     Indication: LOCAL ANAESTHESIA
     Route: 004
     Dates: start: 20170327, end: 20170327

REACTIONS (9)
  - Hemiplegia [Not Recovered/Not Resolved]
  - Reversible cerebral vasoconstriction syndrome [Recovering/Resolving]
  - Feeling abnormal [Unknown]
  - Vomiting [Unknown]
  - Haemorrhagic stroke [Recovering/Resolving]
  - Neurologic neglect syndrome [Unknown]
  - Confusional state [Recovered/Resolved]
  - Headache [Unknown]
  - Somnolence [Unknown]

NARRATIVE: CASE EVENT DATE: 20170327
